FAERS Safety Report 5496132-X (Version None)
Quarter: 2007Q4

REPORT INFORMATION
  Report Type: 
  Country: None (occurrence: None)
  Receive Date: 20071025
  Receipt Date: 20070209
  Transmission Date: 20080405
  Serious: No
  Sender: FDA-Public Use
  Company Number: A0637641A

PATIENT
  Age: 67 Year
  Sex: Female
  Weight: 58.2 kg

DRUGS (1)
  1. ADVAIR DISKUS 100/50 [Suspect]
     Indication: DRUG USE FOR UNKNOWN INDICATION
     Route: 055

REACTIONS (3)
  - DISTURBANCE IN ATTENTION [None]
  - IMPAIRED DRIVING ABILITY [None]
  - MENTAL DISORDER [None]
